FAERS Safety Report 8126104-8 (Version None)
Quarter: 2012Q1

REPORT INFORMATION
  Report Type: 
  Country: None (occurrence: None)
  Receive Date: 20120209
  Receipt Date: 20120131
  Transmission Date: 20120608
  Serious: Yes (Hospitalization, Other)
  Sender: FDA-Public Use
  Company Number: PHHY2011JP89573

PATIENT
  Age: 62 Year
  Sex: Female

DRUGS (13)
  1. RIVASTIGMINE [Suspect]
     Dosage: 9 MG, QD
     Route: 062
     Dates: start: 20111018
  2. DAIO-KANZO-TO [Concomitant]
  3. KAMAG G [Concomitant]
  4. VOGLIBOSE [Concomitant]
  5. ASPIRIN [Concomitant]
  6. AMARYL [Concomitant]
  7. GASMOTIN [Concomitant]
  8. LITHIUM CARBONATE [Concomitant]
  9. RIVASTIGMINE [Suspect]
     Dosage: 13.5 MG, QD
     Route: 062
     Dates: start: 20111004, end: 20111017
  10. AMLODIPINE BESYLATE [Concomitant]
     Dosage: 2.5 MG, UNK
     Dates: start: 20110809
  11. LIPITOR [Concomitant]
  12. RIVASTIGMINE [Suspect]
     Indication: DEMENTIA ALZHEIMER'S TYPE
     Dosage: 4.5 MG, QD
     Route: 062
     Dates: start: 20110809, end: 20110905
  13. RIVASTIGMINE [Suspect]
     Dosage: 9 MG, QD
     Route: 062
     Dates: start: 20110906, end: 20111003

REACTIONS (10)
  - AGGRESSION [None]
  - MANIA [None]
  - PERSONALITY CHANGE [None]
  - MENTAL DISORDER [None]
  - FALL [None]
  - LOGORRHOEA [None]
  - CELLULITIS [None]
  - EUPHORIC MOOD [None]
  - DRUG INEFFECTIVE [None]
  - OEDEMA PERIPHERAL [None]
